FAERS Safety Report 20175003 (Version 1)
Quarter: 2021Q4

REPORT INFORMATION
  Report Type: Spontaneous
  Country: US (occurrence: None)
  Receive Date: 20211209
  Receipt Date: 20211209
  Transmission Date: 20220303
  Serious: No
  Sender: FDA-Public Use
  Company Number: None

PATIENT
  Age: 86 Year
  Sex: Female
  Weight: 64.8 kg

DRUGS (12)
  1. TEMOZOLOMIDE [Suspect]
     Active Substance: TEMOZOLOMIDE
     Indication: Brain neoplasm
     Dosage: FREQUENCY : DAILY;?
     Route: 048
     Dates: start: 20211021, end: 20211126
  2. PEPCID [Concomitant]
     Active Substance: FAMOTIDINE
  3. ONDANSETRON [Concomitant]
     Active Substance: ONDANSETRON
  4. AMLODIPINE [Concomitant]
     Active Substance: AMLODIPINE BESYLATE
  5. VITAMINS [Concomitant]
     Active Substance: VITAMINS
  6. ATORVASTATIN [Concomitant]
     Active Substance: ATORVASTATIN
  7. LEVETIRACETAM [Concomitant]
     Active Substance: LEVETIRACETAM
  8. TYLENOL [Concomitant]
     Active Substance: ACETAMINOPHEN
  9. DEXAMETHASONE [Concomitant]
     Active Substance: DEXAMETHASONE
  10. SPIRONOLACTONE [Concomitant]
     Active Substance: SPIRONOLACTONE
  11. KERAVIATIN [Concomitant]
  12. BACTRIM DS [Concomitant]
     Active Substance: SULFAMETHOXAZOLE\TRIMETHOPRIM

REACTIONS (1)
  - Hospice care [None]

NARRATIVE: CASE EVENT DATE: 20211126
